FAERS Safety Report 13791686 (Version 1)
Quarter: 2017Q3

REPORT INFORMATION
  Report Type: Spontaneous
  Country: CN (occurrence: CN)
  Receive Date: 20170725
  Receipt Date: 20170725
  Transmission Date: 20171127
  Serious: Yes (Other)
  Sender: FDA-Public Use
  Company Number: PHHY2017CN108037

PATIENT
  Age: 44 Year
  Sex: Female

DRUGS (21)
  1. PEMETREXED. [Suspect]
     Active Substance: PEMETREXED
     Dosage: 800 MG, UNK
     Route: 065
     Dates: start: 20150528
  2. CARBOPLATIN. [Suspect]
     Active Substance: CARBOPLATIN
     Dosage: 300 MG, UNK
     Route: 065
     Dates: start: 20150717, end: 20150805
  3. HYDROCHLOROTHIAZIDE. [Concomitant]
     Active Substance: HYDROCHLOROTHIAZIDE
     Indication: HYPERTENSION
     Dosage: 25 MG, TID
     Route: 065
  4. ZOLEDRONATE [Suspect]
     Active Substance: ZOLEDRONIC ACID
     Indication: BONE PAIN
     Dosage: 3.3 MG, UNK
     Route: 065
     Dates: start: 20150505
  5. ZOLEDRONATE [Suspect]
     Active Substance: ZOLEDRONIC ACID
     Dosage: 3 MG, UNK
     Route: 065
     Dates: start: 20150528
  6. PEMETREXED. [Suspect]
     Active Substance: PEMETREXED
     Dosage: 800 MG, UNK
     Route: 065
     Dates: start: 20150717
  7. PEMETREXED. [Suspect]
     Active Substance: PEMETREXED
     Dosage: 800 MG, UNK
     Route: 065
     Dates: start: 20150806
  8. ZOLEDRONATE [Suspect]
     Active Substance: ZOLEDRONIC ACID
     Dosage: 3 MG, UNK
     Route: 065
     Dates: start: 20150624
  9. PEMETREXED. [Suspect]
     Active Substance: PEMETREXED
     Indication: LUNG ADENOCARCINOMA STAGE IV
     Dosage: 800 MG, UNK
     Route: 065
     Dates: start: 20150407
  10. PEMETREXED. [Suspect]
     Active Substance: PEMETREXED
     Dosage: 800 MG, UNK
     Route: 065
     Dates: start: 20150828
  11. PEMETREXED. [Suspect]
     Active Substance: PEMETREXED
     Dosage: 700 MG, UNK
     Route: 065
     Dates: start: 20150918
  12. CARBOPLATIN. [Suspect]
     Active Substance: CARBOPLATIN
     Indication: LUNG ADENOCARCINOMA STAGE IV
     Dosage: 350 MG, UNK
     Route: 065
     Dates: start: 20150407
  13. CARBOPLATIN. [Suspect]
     Active Substance: CARBOPLATIN
     Dosage: 350 MG, UNK
     Route: 065
     Dates: start: 20150505
  14. CARBOPLATIN. [Suspect]
     Active Substance: CARBOPLATIN
     Dosage: 300 MG, UNK
     Route: 065
     Dates: start: 20150624
  15. PEMETREXED. [Suspect]
     Active Substance: PEMETREXED
     Dosage: 800 MG, UNK
     Route: 065
     Dates: start: 20150505
  16. PEMETREXED. [Suspect]
     Active Substance: PEMETREXED
     Dosage: 800 MG, UNK
     Route: 065
     Dates: start: 20150624
  17. ZOLEDRONATE [Suspect]
     Active Substance: ZOLEDRONIC ACID
     Indication: METASTASES TO BONE
     Dosage: 3.3 MG, UNK
     Route: 065
     Dates: start: 20150407
  18. IRBESARTAN. [Concomitant]
     Active Substance: IRBESARTAN
     Indication: HYPERTENSION
     Dosage: 0.15 G, QD
     Route: 065
  19. CARBOPLATIN. [Suspect]
     Active Substance: CARBOPLATIN
     Dosage: 350 MG, UNK
     Route: 065
     Dates: start: 20150528
  20. NIFEDIPINE. [Concomitant]
     Active Substance: NIFEDIPINE
     Indication: HYPERTENSION
     Dosage: 30 MG, QD
     Route: 065
  21. ZOLEDRONATE [Suspect]
     Active Substance: ZOLEDRONIC ACID
     Dosage: 3 MG, UNK
     Route: 065
     Dates: start: 20150717, end: 20150805

REACTIONS (2)
  - Bone marrow failure [Unknown]
  - Creatinine renal clearance decreased [Unknown]

NARRATIVE: CASE EVENT DATE: 20150407
